FAERS Safety Report 5304201-X (Version None)
Quarter: 2007Q2

REPORT INFORMATION
  Report Type: 
  Country: None (occurrence: None)
  Receive Date: 20070423
  Receipt Date: 20070409
  Transmission Date: 20071010
  Serious: Yes (Other)
  Sender: FDA-Public Use
  Company Number: PHEH2007US04912

PATIENT
  Age: 42 Year
  Sex: Male

DRUGS (1)
  1. ZELNORM [Suspect]
     Indication: CONSTIPATION
     Dosage: 6 MG, BID
     Route: 048
     Dates: start: 20050208, end: 20050801

REACTIONS (3)
  - CARDIAC ABLATION [None]
  - PALPITATIONS [None]
  - TACHYCARDIA [None]
